FAERS Safety Report 15797872 (Version 1)
Quarter: 2019Q1

REPORT INFORMATION
  Report Type: Report from Study
  Country: None (occurrence: FR)
  Receive Date: 20190108
  Receipt Date: 20190108
  Transmission Date: 20190417
  Serious: Yes (Hospitalization)
  Sender: FDA-Public Use
  Company Number: FR-ABBVIE-18P-056-2564815-00

PATIENT
  Age: 26 Year
  Sex: Female

DRUGS (6)
  1. METOJECT [Concomitant]
     Active Substance: METHOTREXATE SODIUM
     Indication: COLITIS ULCERATIVE
     Route: 058
     Dates: start: 201409
  2. LEVOTHYROX [Concomitant]
     Active Substance: LEVOTHYROXINE
     Indication: BASEDOW^S DISEASE
     Route: 048
     Dates: start: 201503
  3. HUMIRA [Suspect]
     Active Substance: ADALIMUMAB
     Indication: COLITIS ULCERATIVE
     Route: 058
     Dates: start: 20130215, end: 20151005
  4. ETROLIZUMAB. [Concomitant]
     Active Substance: ETROLIZUMAB
     Indication: COLITIS ULCERATIVE
     Route: 058
     Dates: start: 20151228
  5. SPECIAFOLDINE [Concomitant]
     Active Substance: FOLIC ACID
     Indication: COLITIS ULCERATIVE
     Route: 048
     Dates: start: 201409
  6. PENTASA [Concomitant]
     Active Substance: MESALAMINE
     Indication: COLITIS ULCERATIVE
     Route: 048
     Dates: start: 2008

REACTIONS (1)
  - Mastoptosis [Recovered/Resolved]

NARRATIVE: CASE EVENT DATE: 20180108
